FAERS Safety Report 8121430-0 (Version None)
Quarter: 2012Q1

REPORT INFORMATION
  Report Type: 
  Country: None (occurrence: None)
  Receive Date: 20120203
  Receipt Date: 20120126
  Transmission Date: 20120608
  Serious: Yes (Other)
  Sender: FDA-Public Use
  Company Number: 2012SP005037

PATIENT
  Age: 35 Year
  Sex: Female

DRUGS (6)
  1. RIBAVIRIN [Suspect]
     Indication: HEPATITIS C
     Dosage: 800 MG;QD; 800 MG;QD
     Dates: start: 20081001
  2. RIBAVIRIN [Suspect]
     Indication: HEPATITIS C
     Dosage: 800 MG;QD; 800 MG;QD
     Dates: start: 20091101
  3. OSELTAMIVIR PHOSPHATE [Suspect]
     Indication: H1N1 INFLUENZA
     Dosage: 75 MG;BID
  4. PEG-INTRON [Suspect]
     Indication: HEPATITIS C
     Dosage: 80 MCG;QW; 80 MCG;QW
     Dates: start: 20081001
  5. PEG-INTRON [Suspect]
     Indication: HEPATITIS C
     Dosage: 80 MCG;QW; 80 MCG;QW
     Dates: start: 20091101
  6. AMOXICILLIN AND CLAVULANATE POTASSIUM [Concomitant]

REACTIONS (7)
  - H1N1 INFLUENZA [None]
  - DISEASE RECURRENCE [None]
  - SERUM FERRITIN INCREASED [None]
  - DRUG INTERACTION [None]
  - HEPATITIS C [None]
  - BONE MARROW FAILURE [None]
  - HAEMOLYTIC ANAEMIA [None]
